FAERS Safety Report 6931222-3 (Version None)
Quarter: 2010Q3

REPORT INFORMATION
  Report Type: 
  Country: None (occurrence: None)
  Receive Date: 20100816
  Receipt Date: 20100730
  Transmission Date: 20110219
  Serious: Yes (Hospitalization)
  Sender: FDA-Public Use
  Company Number: THQ2010A02188

PATIENT
  Age: 51 Year
  Sex: Male

DRUGS (4)
  1. PIOGLITAZONE HCL [Suspect]
     Indication: DIABETES MELLITUS
     Dosage: 30 MG (15 MG,2 IN 1 D)
     Dates: start: 20080606, end: 20100716
  2. EXENATIDE (ANTI-DIABETICS) [Suspect]
     Dates: start: 20070727, end: 20100716
  3. METFORMIN HCL [Suspect]
     Indication: DIABETES MELLITUS
     Dosage: 3000 MG (1000 MG,3 IN 1 D)
     Dates: start: 20041005
  4. EXENATIDE 5 MCG PEN. DISPOSABLE DEVICE (ANTI-DIABETICS) [Concomitant]

REACTIONS (1)
  - PERIARTHRITIS [None]
